FAERS Safety Report 17624620 (Version 2)
Quarter: 2020Q3

REPORT INFORMATION
  Report Type: Spontaneous
  Country: GB (occurrence: GB)
  Receive Date: 20200404
  Receipt Date: 20200512
  Transmission Date: 20201104
  Serious: Yes (Hospitalization)
  Sender: FDA-Public Use
  Company Number: GB-SUN PHARMACEUTICAL INDUSTRIES LTD-2020RR-242750

PATIENT
  Age: 53 Year
  Sex: Female
  Weight: 67 kg

DRUGS (1)
  1. FERROUS SULFATE. [Suspect]
     Active Substance: FERROUS SULFATE
     Indication: PRODUCT USED FOR UNKNOWN INDICATION
     Dosage: 200 MILLIGRAM
     Route: 048
     Dates: start: 20200304, end: 20200309

REACTIONS (12)
  - Pain in extremity [Unknown]
  - Heart rate increased [Unknown]
  - Abdominal pain [Recovering/Resolving]
  - Hepatic pain [Unknown]
  - Fatigue [Unknown]
  - Abnormal faeces [Unknown]
  - Diarrhoea [Unknown]
  - Headache [Unknown]
  - Hypotension [Unknown]
  - Liver function test abnormal [Unknown]
  - Faeces discoloured [Unknown]
  - Haematochezia [Unknown]

NARRATIVE: CASE EVENT DATE: 20200309
